FAERS Safety Report 7269859-7 (Version None)
Quarter: 2011Q1

REPORT INFORMATION
  Report Type: 
  Country: None (occurrence: None)
  Receive Date: 20110202
  Receipt Date: 20110128
  Transmission Date: 20110831
  Serious: No
  Sender: FDA-Public Use
  Company Number: AU-JNJFOC-20110200420

PATIENT
  Sex: Male

DRUGS (5)
  1. ENDONE [Concomitant]
     Route: 065
  2. ANTIPSYCHOTIC MEDICATIONS [Concomitant]
     Route: 065
  3. DURAGESIC-100 [Suspect]
     Route: 062
  4. DURAGESIC-100 [Suspect]
     Route: 062
  5. DURAGESIC-100 [Suspect]
     Indication: PAIN IN EXTREMITY
     Route: 062

REACTIONS (5)
  - PRODUCT QUALITY ISSUE [None]
  - HYPERHIDROSIS [None]
  - ERYTHEMA [None]
  - DRUG INEFFECTIVE [None]
  - WRONG TECHNIQUE IN DRUG USAGE PROCESS [None]
